FAERS Safety Report 10080826 (Version 1)
Quarter: 2014Q2

REPORT INFORMATION
  Report Type: Spontaneous
  Country: US (occurrence: None)
  Receive Date: 20140414
  Receipt Date: 20140414
  Transmission Date: 20141212
  Serious: Yes (Other)
  Sender: FDA-Public Use
  Company Number: 201404032

PATIENT
  Age: 57 Year
  Sex: Male

DRUGS (1)
  1. TESTOPEL [Suspect]
     Indication: PRODUCT USED FOR UNKNOWN INDICATION
     Dosage: 10 PELLETS, IMPLANT
     Dates: start: 20130930

REACTIONS (3)
  - Myocardial infarction [None]
  - Hypertension [None]
  - Sleep apnoea syndrome [None]
